FAERS Safety Report 5225166-5 (Version None)
Quarter: 2007Q1

REPORT INFORMATION
  Report Type: 
  Country: None (occurrence: None)
  Receive Date: 20070131
  Receipt Date: 20070122
  Transmission Date: 20070707
  Serious: Yes (Death)
  Sender: FDA-Public Use
  Company Number: JP-MERCK-0612USA03647

PATIENT
  Age: 82 Year
  Sex: Female

DRUGS (4)
  1. PEPCID [Suspect]
     Indication: UPPER GASTROINTESTINAL HAEMORRHAGE
     Route: 042
     Dates: start: 20061116, end: 20061209
  2. PREDONINE [Concomitant]
     Indication: DERMATOMYOSITIS
     Route: 042
     Dates: start: 20061001, end: 20061104
  3. AMINOFLUID [Concomitant]
     Route: 042
     Dates: start: 20061116, end: 20061209
  4. DEXTROSE [Concomitant]
     Route: 042
     Dates: start: 20061116, end: 20061209

REACTIONS (1)
  - PANCYTOPENIA [None]
